FAERS Safety Report 19861620 (Version 1)
Quarter: 2021Q3

REPORT INFORMATION
  Report Type: Spontaneous
  Country: US (occurrence: US)
  Receive Date: 20210918
  Receipt Date: 20210918
  Transmission Date: 20211014
  Serious: Yes (Hospitalization)
  Sender: FDA-Public Use
  Company Number: None

PATIENT
  Sex: Male
  Weight: 144.1 kg

DRUGS (6)
  1. PREDNISONE. [Suspect]
     Active Substance: PREDNISONE
     Dates: end: 20210316
  2. DEXAMETHASONE. [Suspect]
     Active Substance: DEXAMETHASONE
     Dosage: ?          OTHER DOSE:.1%;?
     Dates: end: 20210901
  3. METHOTREXATE. [Suspect]
     Active Substance: METHOTREXATE
     Dates: end: 20210901
  4. VINCRISTINE SULFATE. [Suspect]
     Active Substance: VINCRISTINE SULFATE
     Dates: end: 20210903
  5. SPRYCEL [Suspect]
     Active Substance: DASATINIB
     Dates: end: 20210901
  6. CYTARABINE. [Suspect]
     Active Substance: CYTARABINE
     Dates: end: 20210901

REACTIONS (6)
  - Mucosal inflammation [None]
  - White blood cell count decreased [None]
  - Headache [None]
  - Red blood cell count decreased [None]
  - Petechiae [None]
  - Sinusitis [None]

NARRATIVE: CASE EVENT DATE: 20210911
